FAERS Safety Report 6837213-5 (Version None)
Quarter: 2010Q3

REPORT INFORMATION
  Report Type: 
  Country: None (occurrence: None)
  Receive Date: 20100713
  Receipt Date: 20070716
  Transmission Date: 20110219
  Serious: Yes (Other)
  Sender: FDA-Public Use
  Company Number: US-PFIZER INC-2007037644

PATIENT
  Sex: Female

DRUGS (3)
  1. CHANTIX [Suspect]
     Indication: SMOKING CESSATION THERAPY
  2. ALLEGRA D 24 HOUR [Suspect]
     Indication: SINUS HEADACHE
  3. LORAZEPAM [Concomitant]

REACTIONS (2)
  - BLOOD PRESSURE DECREASED [None]
  - SINUS HEADACHE [None]
